FAERS Safety Report 18815912 (Version 1)
Quarter: 2021Q1

REPORT INFORMATION
  Report Type: Spontaneous
  Country: US (occurrence: US)
  Receive Date: 20210201
  Receipt Date: 20210201
  Transmission Date: 20210419
  Serious: No
  Sender: FDA-Public Use
  Company Number: None

PATIENT
  Age: 64 Year
  Sex: Female
  Weight: 94.5 kg

DRUGS (9)
  1. VITAMIN D [Concomitant]
     Active Substance: VITAMIN D NOS
  2. PROBIOTICS [Concomitant]
     Active Substance: PROBIOTICS NOS
  3. CONTRAVE [Suspect]
     Active Substance: BUPROPION HYDROCHLORIDE\NALTREXONE HYDROCHLORIDE
     Indication: WEIGHT DECREASED
     Dosage: ?          QUANTITY:120 TABLET(S);OTHER FREQUENCY:DOSE CHANGES;?
     Route: 048
     Dates: start: 20210116, end: 20210201
  4. NEURONTIN [Concomitant]
     Active Substance: GABAPENTIN
  5. VITAMIN B12 [Concomitant]
     Active Substance: CYANOCOBALAMIN
  6. TRAMADOL. [Concomitant]
     Active Substance: TRAMADOL
  7. AMBIEN [Concomitant]
     Active Substance: ZOLPIDEM TARTRATE
  8. XELJANZ [Concomitant]
     Active Substance: TOFACITINIB CITRATE
  9. MVI [Concomitant]
     Active Substance: VITAMINS

REACTIONS (2)
  - Nightmare [None]
  - Abnormal dreams [None]

NARRATIVE: CASE EVENT DATE: 20210201
